FAERS Safety Report 6775693-4 (Version None)
Quarter: 2010Q2

REPORT INFORMATION
  Report Type: 
  Country: None (occurrence: None)
  Receive Date: 20100520
  Receipt Date: 20090429
  Transmission Date: 20101027
  Serious: Yes (Other)
  Sender: FDA-Public Use
  Company Number: 2008056082

PATIENT
  Age: 61 Year
  Sex: Female
  Weight: 70.2 kg

DRUGS (12)
  1. PROVERA [Suspect]
     Indication: HORMONE REPLACEMENT THERAPY
     Dosage: 10MG/5MG, ORAL
     Route: 048
     Dates: start: 19910910, end: 20000306
  2. PREMARIN [Suspect]
     Indication: HORMONE REPLACEMENT THERAPY
     Dates: start: 19980101
  3. ESTRACE [Suspect]
     Indication: HORMONE REPLACEMENT THERAPY
     Dosage: 1MG/2MG
     Dates: start: 19910910, end: 20000306
  4. FEMHRT [Suspect]
     Indication: HORMONE REPLACEMENT THERAPY
     Dates: start: 20000612, end: 20020101
  5. PREMPRO [Suspect]
     Indication: HORMONE REPLACEMENT THERAPY
     Dosage: 0.625MG/2.5MG
     Dates: start: 20000306, end: 20000607
  6. SUMATRIPTAN SUCCINATE (IMITREX) [Concomitant]
  7. PROZAC [Concomitant]
  8. CALCIUM (CALCIUM) [Concomitant]
  9. TOPAMAX [Concomitant]
  10. PREVACID [Concomitant]
  11. DIAZEPAM [Concomitant]
  12. VALIUM [Concomitant]

REACTIONS (1)
  - BREAST CANCER FEMALE [None]
